FAERS Safety Report 18585396 (Version 1)
Quarter: 2020Q4

REPORT INFORMATION
  Report Type: Spontaneous
  Country: BR (occurrence: BR)
  Receive Date: 20201207
  Receipt Date: 20201207
  Transmission Date: 20210114
  Serious: Yes (Other)
  Sender: FDA-Public Use
  Company Number: BR-PFIZER INC-2020476752

PATIENT
  Age: 57 Year
  Sex: Male

DRUGS (5)
  1. XALATAN [Suspect]
     Active Substance: LATANOPROST
     Indication: GLAUCOMA
     Dosage: 1 DF(DROP) IN EACH EYE, 1X/DAY
     Route: 047
     Dates: start: 2000
  2. DUO-TRAVATAN [Suspect]
     Active Substance: TIMOLOL MALEATE\TRAVOPROST
     Dosage: 1 DF(DROP) IN EACH EYE, 1X/DAY
     Route: 047
  3. TRAVATAN [Suspect]
     Active Substance: TRAVOPROST
     Route: 047
  4. XALACOM [Suspect]
     Active Substance: LATANOPROST\TIMOLOL MALEATE
     Dosage: 1 DF(DROP) IN EACH EYE, 1X/DAY
     Route: 047
  5. TIMOLOL MALEATE. [Suspect]
     Active Substance: TIMOLOL MALEATE
     Indication: GLAUCOMA
     Dosage: 1 DF IN EACH EYE
     Route: 047

REACTIONS (2)
  - Visual impairment [Unknown]
  - Eye disorder [Unknown]

NARRATIVE: CASE EVENT DATE: 2008
